FAERS Safety Report 13085323 (Version 1)
Quarter: 2017Q1

REPORT INFORMATION
  Report Type: Spontaneous
  Country: FR (occurrence: FR)
  Receive Date: 20170104
  Receipt Date: 20170104
  Transmission Date: 20170428
  Serious: Yes (Hospitalization)
  Sender: FDA-Public Use
  Company Number: FR-PFIZER INC-2016605097

PATIENT
  Age: 5 Year
  Sex: Male
  Weight: 25 kg

DRUGS (2)
  1. DOLIPRANE [Concomitant]
     Active Substance: ACETAMINOPHEN
     Indication: PYREXIA
     Dosage: 1 DF, 1X/DAY
     Route: 048
     Dates: start: 20161128, end: 20161129
  2. ADVIL [Suspect]
     Active Substance: IBUPROFEN
     Indication: PYREXIA
     Dosage: 100 MG, 1X/DAY
     Route: 048
     Dates: start: 20161128, end: 20161129

REACTIONS (3)
  - Neck pain [Unknown]
  - Condition aggravated [Recovered/Resolved]
  - Pharyngeal abscess [Recovered/Resolved]

NARRATIVE: CASE EVENT DATE: 20161128
